FAERS Safety Report 9300148 (Version 1)
Quarter: 2013Q2

REPORT INFORMATION
  Report Type: Spontaneous
  Country: DE (occurrence: DE)
  Receive Date: 20130521
  Receipt Date: 20130521
  Transmission Date: 20140414
  Serious: Yes (Hospitalization)
  Sender: FDA-Public Use
  Company Number: DE-BAYER-2013-061939

PATIENT
  Age: 59 Year
  Sex: Male

DRUGS (1)
  1. AVALOX [Suspect]
     Indication: SINOBRONCHITIS
     Dosage: 400 MG, QD,
     Dates: start: 20130124

REACTIONS (3)
  - Hypersensitivity [Recovered/Resolved]
  - Cardiovascular disorder [Recovered/Resolved]
  - Dyspnoea [Recovered/Resolved]
